FAERS Safety Report 18494124 (Version 1)
Quarter: 2020Q4

REPORT INFORMATION
  Report Type: Other
  Country: DE (occurrence: DE)
  Receive Date: 20201112
  Receipt Date: 20201112
  Transmission Date: 20210114
  Serious: Yes (Hospitalization, Other)
  Sender: FDA-Public Use
  Company Number: DE-HRARD-202000861

PATIENT
  Sex: Female

DRUGS (1)
  1. METYRAPONE [Suspect]
     Active Substance: METYRAPONE
     Indication: HYPERADRENOCORTICISM

REACTIONS (4)
  - Hypercalcaemia [Unknown]
  - Hypertension [Unknown]
  - Hyperandrogenism [Unknown]
  - Ovarian granulosa cell tumour [Unknown]
